FAERS Safety Report 20437715 (Version 1)
Quarter: 2022Q1

REPORT INFORMATION
  Report Type: Spontaneous
  Country: CN (occurrence: CN)
  Receive Date: 20220207
  Receipt Date: 20220207
  Transmission Date: 20220423
  Serious: Yes (Life-Threatening)
  Sender: FDA-Public Use
  Company Number: CN-BAXTER-2022BAX002088

PATIENT
  Age: 64 Year
  Sex: Female
  Weight: 67 kg

DRUGS (13)
  1. CYCLOPHOSPHAMIDE [Suspect]
     Active Substance: CYCLOPHOSPHAMIDE
     Indication: Diffuse large B-cell lymphoma
     Dosage: R-CHOPE CHEMOTHERAPY: NS 500ML + CYCLOPHOSPHAMIDE 1.2G IVGTT ONCE D2,
     Route: 041
     Dates: start: 20220106, end: 20220106
  2. SODIUM CHLORIDE [Suspect]
     Active Substance: SODIUM CHLORIDE
     Indication: Medication dilution
     Dosage: R-CHOPE CHEMOTHERAPY: NS 750ML + RITUXIMAB INJECTION 0.6G IVGTT ONCE D1
     Route: 041
     Dates: start: 20220105, end: 20220105
  3. SODIUM CHLORIDE [Suspect]
     Active Substance: SODIUM CHLORIDE
     Dosage: R-CHOPE CHEMOTHERAPY: NS 500ML + CYCLOPHOSPHAMIDE 1.2G IVGTT ONCE D2
     Route: 041
     Dates: start: 20220106, end: 20220106
  4. DOXORUBICIN HYDROCHLORIDE [Suspect]
     Active Substance: DOXORUBICIN HYDROCHLORIDE
     Indication: Diffuse large B-cell lymphoma
     Dosage: R-CHOPE CHEMOTHERAPY: 5% GS 250ML + DOXORUBICIN HYDROCHLORIDE LIPOSOME INJECTION 40MG IVGTT ONCE D2
     Route: 041
     Dates: start: 20220106, end: 20220106
  5. VINDESINE [Suspect]
     Active Substance: VINDESINE
     Indication: Diffuse large B-cell lymphoma
     Dosage: R-CHOPE CHEMOTHERAPY: NS 30ML + VINDESINE SULFATE FOR INJECTION 4MG IV ONCE D2,
     Route: 042
     Dates: start: 20220106, end: 20220106
  6. DEXAMETHASONE SODIUM PHOSPHATE [Suspect]
     Active Substance: DEXAMETHASONE SODIUM PHOSPHATE
     Indication: Diffuse large B-cell lymphoma
     Dosage: R-CHOPE CHEMOTHERAPY: NS 250ML + DEXAMETHASONE SODIUM PHOSPHATE INJECTION 15MG IVGTT QD D2-6
     Route: 041
     Dates: start: 20220106, end: 20220110
  7. ETOPOSIDE [Suspect]
     Active Substance: ETOPOSIDE
     Indication: Diffuse large B-cell lymphoma
     Dosage: R-CHOPE CHEMOTHERAPY: NS 500ML + ETOPOSIDE INJECTION 0.1G IVGTT QD D2-5,
     Route: 041
     Dates: start: 20220106, end: 20220109
  8. SODIUM CHLORIDE [Suspect]
     Active Substance: SODIUM CHLORIDE
     Indication: Medication dilution
     Dosage: R-CHOPE CHEMOTHERAPY: NS 30ML + VINDESINE SULFATE FOR INJECTION 4MG IV ONCE D2,
     Route: 042
     Dates: start: 20220106, end: 20220106
  9. DEXTROSE [Suspect]
     Active Substance: DEXTROSE
     Indication: Medication dilution
     Dosage: 5% GS 250ML + DOXORUBICIN HYDROCHLORIDE LIPOSOME INJECTION 40MG IVGTT ONCE D2,
     Route: 041
     Dates: start: 20220106, end: 20220106
  10. SODIUM CHLORIDE [Suspect]
     Active Substance: SODIUM CHLORIDE
     Indication: Medication dilution
     Dosage: NS 250ML + DEXAMETHASONE SODIUM PHOSPHATE INJECTION 15MG IVGTT QD D2-6.
     Route: 041
     Dates: start: 20220106, end: 20220110
  11. SODIUM CHLORIDE [Suspect]
     Active Substance: SODIUM CHLORIDE
     Dosage: R-CHOPE CHEMOTHERAPY: NS 500ML + ETOPOSIDE INJECTION 0.1G IVGTT QD D2-5,
     Route: 041
     Dates: start: 20220105, end: 20220109
  12. MABTHERA [Suspect]
     Active Substance: RITUXIMAB
     Indication: Diffuse large B-cell lymphoma
     Dosage: R-CHOPE CHEMOTHERAPY: NS 750ML + RITUXIMAB INJECTION 0.6G IVGTT ONCE D1
     Route: 041
     Dates: start: 20220105, end: 20220105
  13. MABTHERA [Suspect]
     Active Substance: RITUXIMAB
     Dosage: R-CHOPE CHEMOTHERAPY: NS 750ML + RITUXIMAB INJECTION 0.6G IVGTT ONCE D1
     Route: 041
     Dates: start: 20220105, end: 20220105

REACTIONS (4)
  - White blood cell count decreased [Recovering/Resolving]
  - Neutrophil count decreased [Recovering/Resolving]
  - Haemoglobin decreased [Recovering/Resolving]
  - Red blood cell count decreased [Recovering/Resolving]

NARRATIVE: CASE EVENT DATE: 20220114
